FAERS Safety Report 22167640 (Version 1)
Quarter: 2023Q2

REPORT INFORMATION
  Report Type: Spontaneous
  Country: FR (occurrence: FR)
  Receive Date: 20230403
  Receipt Date: 20230403
  Transmission Date: 20230722
  Serious: Yes (Other)
  Sender: FDA-Public Use
  Company Number: FR-AMGEN-FRASP2023056291

PATIENT
  Sex: Female

DRUGS (1)
  1. PROLIA [Suspect]
     Active Substance: DENOSUMAB
     Indication: Osteoporosis
     Dosage: UNK
     Route: 065
     Dates: start: 2014, end: 202204

REACTIONS (5)
  - Atypical femur fracture [Unknown]
  - Acetabulum fracture [Unknown]
  - Lymphoma [Unknown]
  - Rib fracture [Unknown]
  - Arthritis [Unknown]
